FAERS Safety Report 20682530 (Version 1)
Quarter: 2022Q2

REPORT INFORMATION
  Report Type: Spontaneous
  Country: JP (occurrence: JP)
  Receive Date: 20220407
  Receipt Date: 20220407
  Transmission Date: 20220721
  Serious: Yes (Life-Threatening, Hospitalization, Other)
  Sender: FDA-Public Use
  Company Number: JP-LUPIN PHARMACEUTICALS INC.-2022-05100

PATIENT
  Age: 72 Year
  Sex: Male

DRUGS (11)
  1. FAMOTIDINE [Suspect]
     Active Substance: FAMOTIDINE
     Indication: Hepatitis
     Dosage: 20 MG
     Route: 065
  2. ATOVAQUONE [Suspect]
     Active Substance: ATOVAQUONE
     Indication: Pneumonitis
     Dosage: 1500 MG
     Route: 065
  3. METHYLPREDNISOLONE [Suspect]
     Active Substance: METHYLPREDNISOLONE
     Indication: Drug-induced liver injury
     Dosage: 1000 MG, QD (PULSE)
     Route: 065
  4. ESOMEPRAZOLE [Suspect]
     Active Substance: ESOMEPRAZOLE
     Indication: Hepatitis
     Dosage: 20 MG
     Route: 065
     Dates: start: 202110
  5. PREDNISOLONE [Suspect]
     Active Substance: PREDNISOLONE
     Indication: Drug-induced liver injury
     Dosage: 25 MG, QD
     Route: 065
  6. PREDNISOLONE [Suspect]
     Active Substance: PREDNISOLONE
     Indication: Pneumonitis
     Dosage: 100 MG, QD
     Route: 065
  7. PEMBROLIZUMAB [Concomitant]
     Active Substance: PEMBROLIZUMAB
     Indication: Non-small cell lung cancer stage IV
     Dosage: UNK (200 MG/BODY ON DAY 1; 4 CYCLES)
     Route: 065
  8. AMLODIPINE [Concomitant]
     Active Substance: AMLODIPINE BESYLATE
     Indication: Product used for unknown indication
     Dosage: 5 MG
     Route: 065
     Dates: start: 202110
  9. URSODIOL [Concomitant]
     Active Substance: URSODIOL
     Indication: Drug-induced liver injury
     Dosage: 900 MG
     Route: 065
     Dates: start: 202110
  10. CARBOPLATIN [Concomitant]
     Active Substance: CARBOPLATIN
     Indication: Non-small cell lung cancer stage IV
     Dosage: UNK (FOUR CYCLES; CYCLE LASTED 28 DAYS)
     Route: 065
  11. PEMETREXED [Concomitant]
     Active Substance: PEMETREXED
     Indication: Non-small cell lung cancer stage IV
     Dosage: 500 MILLIGRAM/SQ. METER (4 CYCLES; 500 MG/M2 ON DAY 1; THE CYCLE LASTED 28 DAYS)
     Route: 065

REACTIONS (4)
  - Neutropenia [Recovered/Resolved]
  - Hepatic function abnormal [Unknown]
  - Drug ineffective for unapproved indication [Unknown]
  - Off label use [Unknown]
